FAERS Safety Report 7387666-1 (Version None)
Quarter: 2011Q1

REPORT INFORMATION
  Report Type: 
  Country: None (occurrence: None)
  Receive Date: 20110324
  Receipt Date: 20110310
  Transmission Date: 20110831
  Serious: Yes (Hospitalization, Other)
  Sender: FDA-Public Use
  Company Number: 2011AP000335

PATIENT
  Age: 34 Year
  Sex: Male

DRUGS (18)
  1. EVEROLIMUS (EVEROLIMUS) [Concomitant]
  2. NICORANDIL (NICORANDIL) [Concomitant]
  3. IRBESARTAN [Concomitant]
  4. AZITHROMYCIN [Suspect]
     Indication: BRONCHIOLITIS
     Dosage: 250 MG; QD
  5. HYDROCORTONE [Concomitant]
  6. CALCIUM (CALCIUM) [Concomitant]
  7. CHOLECALCIFEROL (COLECALCIFEROL) [Concomitant]
  8. TOCOPHEROL (TOCOPHEROL) [Concomitant]
  9. CYCLOSPORINE [Suspect]
     Indication: PRODUCT USED FOR UNKNOWN INDICATION
     Dosage: 170 MG; BID
  10. COLCHICINE [Suspect]
     Indication: GOUT
     Dosage: 1 MG; TID, 1 MG; BID, 1 MG; QD
     Dates: start: 20091021, end: 20091022
  11. COLCHICINE [Suspect]
     Indication: GOUT
     Dosage: 1 MG; TID, 1 MG; BID, 1 MG; QD
     Dates: start: 20091023, end: 20091028
  12. COLCHICINE [Suspect]
     Indication: GOUT
     Dosage: 1 MG; TID, 1 MG; BID, 1 MG; QD
     Dates: start: 20091020, end: 20091020
  13. ESOMEPRAZOLE SODIUM (ESOMEPRAZOLE SODIUM) [Concomitant]
  14. ACETYLSALICYLATE LYSINE (ACETYLSALICYLATE LYSINE) [Concomitant]
  15. PRAVASTATIN SODIUM [Suspect]
     Indication: CORONARY ARTERY DISEASE
     Dosage: 20 MG; QD
  16. COLIMYCIN /00013206/ (COLISTMETHATE SODIUM) [Concomitant]
  17. BACTRIM [Concomitant]
  18. FERROUS ASCORBATE (FERROUS ASCORBATE) [Concomitant]

REACTIONS (20)
  - DRUG INTERACTION [None]
  - ALANINE AMINOTRANSFERASE INCREASED [None]
  - DIARRHOEA [None]
  - LYMPHOPENIA [None]
  - COUGH [None]
  - HAEMOPTYSIS [None]
  - RENAL FAILURE [None]
  - ASPARTATE AMINOTRANSFERASE INCREASED [None]
  - INFERIOR VENA CAVA DILATATION [None]
  - HEART RATE INCREASED [None]
  - EJECTION FRACTION DECREASED [None]
  - AZOTAEMIA [None]
  - CYTOLYTIC HEPATITIS [None]
  - PLATELET COUNT DECREASED [None]
  - GOUT [None]
  - DRUG TOLERANCE DECREASED [None]
  - DYSPNOEA [None]
  - RHABDOMYOLYSIS [None]
  - TOXICITY TO VARIOUS AGENTS [None]
  - BLOOD PRESSURE SYSTOLIC INCREASED [None]
